FAERS Safety Report 4646002-1 (Version None)
Quarter: 2005Q2

REPORT INFORMATION
  Report Type: 
  Country: None (occurrence: None)
  Receive Date: 20050425
  Receipt Date: 20050411
  Transmission Date: 20051028
  Serious: Yes (Life-Threatening, Hospitalization, Other)
  Sender: FDA-Public Use
  Company Number: 2005057690

PATIENT
  Age: 71 Year
  Sex: Male
  Weight: 95.2554 kg

DRUGS (8)
  1. BEXTRA [Suspect]
     Indication: ARTHRITIS
  2. OMEPRAZOLE [Concomitant]
  3. TAMSULOSIN HCL [Concomitant]
  4. SINEMET [Concomitant]
  5. CLONAZEPAM [Concomitant]
  6. VICODIN [Concomitant]
  7. MULTIVITAMINS (ASCORBIC ACID/ERGOCALCIFEROL/FOLIC ACID/NICOTINAMIDE/PA [Concomitant]
  8. HERBAL PREPARATION (HERBAL PREPARATION) [Concomitant]

REACTIONS (5)
  - AORTIC ANEURYSM RUPTURE [None]
  - CARDIOMEGALY [None]
  - HAEMORRHAGE [None]
  - MULTI-ORGAN FAILURE [None]
  - MYOCARDIAL INFARCTION [None]
